FAERS Safety Report 11302931 (Version 1)
Quarter: 2015Q3

REPORT INFORMATION
  Report Type: Spontaneous
  Country: US (occurrence: None)
  Receive Date: 20150723
  Receipt Date: 20150723
  Transmission Date: 20151125
  Serious: Yes (Hospitalization)
  Sender: FDA-Public Use
  Company Number: None

PATIENT
  Age: 27 Year
  Sex: Female
  Weight: 48.99 kg

DRUGS (1)
  1. HUMIRA [Suspect]
     Active Substance: ADALIMUMAB
     Dosage: DOSE FORM: INJECTABLE  FREQUENCY: 40 MG Q2W
     Route: 058
     Dates: start: 201506

REACTIONS (3)
  - Lipase increased [None]
  - Back pain [None]
  - Urinary tract infection [None]

NARRATIVE: CASE EVENT DATE: 20150722
